FAERS Safety Report 19793268 (Version 1)
Quarter: 2021Q3

REPORT INFORMATION
  Report Type: Spontaneous
  Country: JP (occurrence: JP)
  Receive Date: 20210906
  Receipt Date: 20210906
  Transmission Date: 20211014
  Serious: Yes (Other)
  Sender: FDA-Public Use
  Company Number: NVSJ2021JP012845

PATIENT
  Age: 34 Year

DRUGS (1)
  1. ENERZAIR [Suspect]
     Active Substance: GLYCOPYRROLATE\INDACATEROL\MOMETASONE FUROATE
     Indication: ASTHMA
     Dosage: 1DF: INDACATEROL150 UG,GLYCOPYRRONIUM50 UG,MOMETASONE FUROATE UNK, BID
     Route: 055
     Dates: start: 202011

REACTIONS (1)
  - Choking [Recovering/Resolving]

NARRATIVE: CASE EVENT DATE: 202011
